FAERS Safety Report 9101934 (Version 1)
Quarter: 2013Q1

REPORT INFORMATION
  Report Type: Spontaneous
  Country: GB (occurrence: GB)
  Receive Date: 20130218
  Receipt Date: 20130218
  Transmission Date: 20140127
  Serious: Yes (Death, Other)
  Sender: FDA-Public Use
  Company Number: GB-TEVA-385891ISR

PATIENT
  Age: 91 Year
  Sex: Female
  Weight: 40.8 kg

DRUGS (3)
  1. NITROFURANTOIN [Suspect]
     Indication: URINARY TRACT INFECTION
     Route: 048
     Dates: start: 20120220, end: 20120221
  2. TRIMETHOPRIM [Concomitant]
     Dates: start: 20120213, end: 20120216
  3. WARFARIN [Concomitant]

REACTIONS (4)
  - Disease progression [Fatal]
  - Treatment failure [Unknown]
  - International normalised ratio increased [Not Recovered/Not Resolved]
  - Drug prescribing error [Unknown]
